FAERS Safety Report 6471938-9 (Version None)
Quarter: 2009Q4

REPORT INFORMATION
  Report Type: 
  Country: None (occurrence: None)
  Receive Date: 20091203
  Receipt Date: 20080401
  Transmission Date: 20100525
  Serious: Yes (Hospitalization, Disabling)
  Sender: FDA-Public Use
  Company Number: TR-ELI_LILLY_AND_COMPANY-TR200804002055

PATIENT
  Sex: Male
  Weight: 98 kg

DRUGS (5)
  1. HUMALOG MIX 75/25 [Suspect]
     Indication: TYPE 2 DIABETES MELLITUS
     Dosage: 34 IU, EACH MORNING
     Route: 058
     Dates: start: 20000101
  2. HUMALOG MIX 75/25 [Suspect]
     Dosage: 28 IU, EACH EVENING
     Route: 058
     Dates: start: 20000101
  3. TRENTAL [Concomitant]
     Indication: HYPERTENSION
     Dosage: UNK UNK, DAILY (1/D)
     Route: 048
  4. ADALAT [Concomitant]
     Indication: HYPERTENSION
     Dosage: UNK UNK, DAILY (1/D)
     Route: 048
  5. DIOVAN HCT [Concomitant]
     Indication: HYPERTENSION
     Dosage: UNK UNK, DAILY (1/D)
     Route: 048

REACTIONS (2)
  - FACIAL PALSY [None]
  - PARALYSIS [None]
